FAERS Safety Report 18271849 (Version 1)
Quarter: 2020Q3

REPORT INFORMATION
  Report Type: Spontaneous
  Country: US (occurrence: US)
  Receive Date: 20200915
  Receipt Date: 20200915
  Transmission Date: 20201103
  Serious: Yes (Hospitalization)
  Sender: FDA-Public Use
  Company Number: None

PATIENT
  Age: 67 Year
  Sex: Female

DRUGS (2)
  1. EXEMESTANE 25MG ZYDUS PHARMACEUTICALS (USA) [Suspect]
     Active Substance: EXEMESTANE
     Indication: NEOPLASM MALIGNANT
     Route: 048
     Dates: start: 20200902
  2. AFINITOR [Suspect]
     Active Substance: EVEROLIMUS
     Indication: NEOPLASM MALIGNANT
     Route: 048
     Dates: start: 20190412

REACTIONS (1)
  - Thrombosis [None]

NARRATIVE: CASE EVENT DATE: 202008
